FAERS Safety Report 21116693 (Version 1)
Quarter: 2022Q3

REPORT INFORMATION
  Report Type: Spontaneous
  Country: FR (occurrence: FR)
  Receive Date: 20220722
  Receipt Date: 20220722
  Transmission Date: 20221026
  Serious: Yes (Other)
  Sender: FDA-Public Use
  Company Number: FR-CELLTRION INC.-2022FR011217

PATIENT

DRUGS (4)
  1. RITUXIMAB [Suspect]
     Active Substance: RITUXIMAB
     Indication: Eosinophilic granulomatosis with polyangiitis
     Dosage: DAY 1 AND 15 DAY, VIA ROA-20045000
  2. RITUXIMAB [Suspect]
     Active Substance: RITUXIMAB
     Dosage: 500 MILLIGRAM, EVERY 6 MONTHS, VIA ROA-20045000
  3. BENRALIZUMAB [Concomitant]
     Active Substance: BENRALIZUMAB
  4. PREDNISONE [Concomitant]
     Active Substance: PREDNISONE

REACTIONS (4)
  - Eosinophilic myocarditis [Unknown]
  - Eosinophil count increased [Unknown]
  - Dyspnoea [Unknown]
  - Off label use [Unknown]
